FAERS Safety Report 5153325-9 (Version None)
Quarter: 2006Q4

REPORT INFORMATION
  Report Type: 
  Country: None (occurrence: None)
  Receive Date: 20061116
  Receipt Date: 20061116
  Transmission Date: 20070319
  Serious: Yes (Life-Threatening)
  Sender: FDA-Public Use
  Company Number: None

PATIENT
  Sex: Male

DRUGS (11)
  1. MOXIFLOXACIN HCL [Suspect]
     Indication: PNEUMONIA
     Dosage: 400MG  Q24HRS  IV
     Route: 042
     Dates: start: 20060728, end: 20060809
  2. ASA/DIPYRIDAMINE [Concomitant]
  3. BACLOFEN [Concomitant]
  4. FINASTERIDE [Concomitant]
  5. FLUVASTATIN [Concomitant]
  6. OMEPRAZOLE [Concomitant]
  7. LISINOPRIL [Concomitant]
  8. MAG OXIDE [Concomitant]
  9. MECLIZINE [Concomitant]
  10. METFORMIN [Concomitant]
  11. TAMSULOSIN HCL [Concomitant]

REACTIONS (7)
  - ACUTE MYOCARDIAL INFARCTION [None]
  - ELECTROLYTE IMBALANCE [None]
  - NEUTROPENIA [None]
  - PSEUDOMONAS INFECTION [None]
  - VENTRICULAR EXTRASYSTOLES [None]
  - VENTRICULAR FIBRILLATION [None]
  - VENTRICULAR TACHYCARDIA [None]
